FAERS Safety Report 8272918-3 (Version None)
Quarter: 2012Q2

REPORT INFORMATION
  Report Type: 
  Country: None (occurrence: None)
  Receive Date: 20120406
  Receipt Date: 20120406
  Transmission Date: 20120825
  Serious: Yes (Life-Threatening)
  Sender: FDA-Public Use
  Company Number: None

PATIENT
  Age: 49 Year
  Sex: Female
  Weight: 93.8946 kg

DRUGS (1)
  1. CLINDAMYCIN HCL [Suspect]
     Indication: VULVOVAGINAL PRURITUS
     Dosage: 2 CAPSULES 6 HOURS 7 DAY
     Dates: start: 20120213, end: 20120215

REACTIONS (4)
  - VISUAL IMPAIRMENT [None]
  - SKIN EXFOLIATION [None]
  - BLISTER [None]
  - ABSCESS [None]
